FAERS Safety Report 4418137-X (Version None)
Quarter: 2004Q3

REPORT INFORMATION
  Report Type: 
  Country: None (occurrence: None)
  Receive Date: 20040805
  Receipt Date: 20040805
  Transmission Date: 20050211
  Serious: Yes (Hospitalization)
  Sender: FDA-Public Use
  Company Number: None

PATIENT
  Age: 39 Year
  Sex: Male
  Weight: 98 kg

DRUGS (8)
  1. INTERFERON  INF [Suspect]
     Indication: METASTATIC MALIGNANT MELANOMA
     Dosage: 19.7 M QD SC
     Route: 058
  2. PROLEUKIN [Suspect]
     Indication: METASTATIC MALIGNANT MELANOMA
     Dosage: 3 MIU QD SC
     Route: 058
  3. VICODIN [Concomitant]
  4. CELECOXIB [Concomitant]
  5. FUROSEMIDE [Concomitant]
  6. DEXAMETHASONE [Concomitant]
  7. ODANSETRON [Concomitant]
  8. FLUCONAZOLE [Concomitant]

REACTIONS (2)
  - METASTASES TO CENTRAL NERVOUS SYSTEM [None]
  - SHOULDER ARTHROPLASTY [None]
